FAERS Safety Report 5002418-5 (Version None)
Quarter: 2006Q2

REPORT INFORMATION
  Report Type: 
  Country: None (occurrence: None)
  Receive Date: 20060510
  Receipt Date: 20060407
  Transmission Date: 20061013
  Serious: Yes (Other)
  Sender: FDA-Public Use
  Company Number: 2006SP001610

PATIENT
  Age: 68 Year
  Sex: Female
  Weight: 84.8 kg

DRUGS (16)
  1. LUNESTA [Suspect]
     Indication: INSOMNIA
     Dosage: ORAL
     Route: 048
     Dates: start: 20050620, end: 20050624
  2. TRACLEER [Suspect]
     Dosage: 125 MG; BID; ORAL
     Route: 048
     Dates: start: 20020130, end: 20050624
  3. SYNTHROID [Concomitant]
  4. ALTACE [Concomitant]
  5. EFFEXOR [Concomitant]
  6. ZOLPIDEM TARTRATE [Concomitant]
  7. AMLODIPINE BESYLATE [Concomitant]
  8. AMYTRIPTYLLINE [Concomitant]
  9. WARFARIN SODIUM [Concomitant]
  10. VERAPAMIL [Concomitant]
  11. SPIRONOLACTONE [Concomitant]
  12. PROPOXYPHENE HYDROCHLORIDE [Concomitant]
  13. MYCOPHENOLATE MOFETIL [Concomitant]
  14. ATENOLOL [Concomitant]
  15. PILOCARPINE [Concomitant]
  16. FLUTICASONE PROPIONATE [Concomitant]

REACTIONS (4)
  - ALANINE AMINOTRANSFERASE INCREASED [None]
  - ASPARTATE AMINOTRANSFERASE INCREASED [None]
  - BLOOD ALKALINE PHOSPHATASE INCREASED [None]
  - DRUG INTERACTION [None]
